FAERS Safety Report 22657920 (Version 1)
Quarter: 2023Q2

REPORT INFORMATION
  Report Type: Spontaneous
  Country: CA (occurrence: CA)
  Receive Date: 20230630
  Receipt Date: 20230630
  Transmission Date: 20230722
  Serious: Yes (Other)
  Sender: FDA-Public Use
  Company Number: CA-TAKEDA-2023TUS061983

PATIENT
  Age: 50 Year
  Sex: Male

DRUGS (1)
  1. VYVANSE [Suspect]
     Active Substance: LISDEXAMFETAMINE DIMESYLATE
     Indication: Product used for unknown indication
     Dosage: 40 MILLIGRAM
     Route: 065

REACTIONS (5)
  - Diabetes mellitus [Unknown]
  - Blood testosterone abnormal [Unknown]
  - Glycosylated haemoglobin increased [Unknown]
  - Blood pressure abnormal [Unknown]
  - Blood glucose increased [Unknown]
